FAERS Safety Report 14106653 (Version 4)
Quarter: 2017Q4

REPORT INFORMATION
  Report Type: Spontaneous
  Country: US (occurrence: US)
  Receive Date: 20171019
  Receipt Date: 20171222
  Transmission Date: 20180321
  Serious: No
  Sender: FDA-Public Use
  Company Number: US-PFIZER INC-2017450021

PATIENT
  Age: 62 Year
  Sex: Male

DRUGS (1)
  1. VIAGRA [Suspect]
     Active Substance: SILDENAFIL CITRATE
     Indication: ERECTILE DYSFUNCTION
     Dosage: 100 MG, UNK (TOOK ONCE)
     Dates: start: 20171021

REACTIONS (7)
  - Malaise [Recovered/Resolved]
  - Swelling [Unknown]
  - Sensation of blood flow [Unknown]
  - Headache [Recovered/Resolved]
  - Abdominal distension [Recovered/Resolved]
  - Swelling face [Recovered/Resolved]
  - Feeling abnormal [Unknown]

NARRATIVE: CASE EVENT DATE: 20171021
